FAERS Safety Report 9802172 (Version 2)
Quarter: 2014Q3

REPORT INFORMATION
  Report Type: Spontaneous
  Country: US (occurrence: US)
  Receive Date: 20140107
  Receipt Date: 20140812
  Transmission Date: 20150326
  Serious: Yes (Hospitalization, Other)
  Sender: FDA-Public Use
  Company Number: US-009507513-1401USA002023

PATIENT
  Sex: Female
  Weight: 74.83 kg

DRUGS (1)
  1. NUVARING [Suspect]
     Active Substance: ETHINYL ESTRADIOL\ETONOGESTREL
     Dosage: UNK
     Route: 067
     Dates: end: 20130504

REACTIONS (28)
  - Ovarian cyst ruptured [Unknown]
  - Vomiting [Unknown]
  - Urinary tract infection [Unknown]
  - Hysterectomy [Unknown]
  - Mental disorder [Unknown]
  - Ovarian cyst [Unknown]
  - Medical device complication [Unknown]
  - Menorrhagia [Unknown]
  - Pulmonary embolism [Unknown]
  - Uterine perforation [Unknown]
  - Pyrexia [Unknown]
  - Nausea [Unknown]
  - Headache [Unknown]
  - Abdominal operation [Unknown]
  - Endometrial ablation [Unknown]
  - Dizziness [Unknown]
  - Ovarian cyst ruptured [Unknown]
  - Emotional distress [Unknown]
  - Anaemia [Unknown]
  - Pelvic pain [Unknown]
  - Depression [Unknown]
  - Systemic lupus erythematosus [Unknown]
  - Laparoscopy [Unknown]
  - Chlamydial pelvic inflammatory disease [Unknown]
  - Diarrhoea [Unknown]
  - Paraesthesia [Unknown]
  - Supraventricular extrasystoles [Unknown]
  - Abdominal pain [Unknown]

NARRATIVE: CASE EVENT DATE: 2004
